FAERS Safety Report 12307135 (Version 1)
Quarter: 2016Q2

REPORT INFORMATION
  Report Type: Spontaneous
  Country: US (occurrence: US)
  Receive Date: 20160426
  Receipt Date: 20160426
  Transmission Date: 20160815
  Serious: No
  Sender: FDA-Public Use
  Company Number: US-ALKERMES INC.-ALK-2016-000184

PATIENT

DRUGS (1)
  1. VIVITROL [Suspect]
     Active Substance: NALTREXONE
     Indication: ALCOHOLISM
     Dosage: 380 MG, QMO
     Route: 030

REACTIONS (5)
  - Injection site swelling [Recovered/Resolved]
  - Oral herpes [Recovered/Resolved]
  - Injection site reaction [Recovered/Resolved]
  - Myalgia [Recovered/Resolved]
  - Oral mucosal eruption [Recovered/Resolved]
